FAERS Safety Report 14481650 (Version 1)
Quarter: 2018Q1

REPORT INFORMATION
  Report Type: Report from Study
  Country: US (occurrence: US)
  Receive Date: 20180202
  Receipt Date: 20180202
  Transmission Date: 20180509
  Serious: Yes (Death, Other)
  Sender: FDA-Public Use
  Company Number: US-ELI_LILLY_AND_COMPANY-US201802000240

PATIENT

DRUGS (2)
  1. PEMETREXED. [Suspect]
     Active Substance: PEMETREXED
     Indication: NEOPLASM MALIGNANT
     Dosage: UNK UNK, CYCLICAL
     Route: 042
  2. SORAFENIB [Concomitant]
     Active Substance: SORAFENIB
     Indication: NEOPLASM MALIGNANT
     Dosage: UNK UNK, BID
     Route: 048

REACTIONS (5)
  - Hepatorenal syndrome [Unknown]
  - Hyperkalaemia [Unknown]
  - Hepatic function abnormal [Unknown]
  - Myocardial infarction [Fatal]
  - Malignant neoplasm progression [Unknown]
